FAERS Safety Report 10579400 (Version 1)
Quarter: 2014Q4

REPORT INFORMATION
  Report Type: Spontaneous
  Country: US (occurrence: US)
  Receive Date: 20141112
  Receipt Date: 20141112
  Transmission Date: 20150529
  Serious: Yes (Other)
  Sender: FDA-Public Use
  Company Number: US-BAYER-2014-165647

PATIENT
  Age: 40 Year
  Sex: Female

DRUGS (1)
  1. MIRENA [Suspect]
     Active Substance: LEVONORGESTREL
     Indication: MENORRHAGIA
     Dosage: 20 MCG/24HR, CONT
     Route: 015
     Dates: start: 20140808, end: 20141028

REACTIONS (5)
  - Post procedural haemorrhage [None]
  - Breast pain [Recovered/Resolved]
  - Menstrual disorder [None]
  - Abdominal pain upper [Recovered/Resolved]
  - Walking disability [Recovered/Resolved]

NARRATIVE: CASE EVENT DATE: 201408
